FAERS Safety Report 8373235-3 (Version None)
Quarter: 2012Q2

REPORT INFORMATION
  Report Type: 
  Country: None (occurrence: None)
  Receive Date: 20120521
  Receipt Date: 20120515
  Transmission Date: 20120825
  Serious: Yes (Hospitalization)
  Sender: FDA-Public Use
  Company Number: US-BAYER-2012-049180

PATIENT
  Age: 16 Year
  Sex: Female
  Weight: 97.506 kg

DRUGS (6)
  1. IBUPROFEN [Concomitant]
     Indication: PAIN IN EXTREMITY
     Dosage: 600 MG, 1TABLET, EVERY 6 HOURS
     Route: 048
     Dates: start: 20030930
  2. AMOXICILLIN [Concomitant]
     Dosage: 875 MG, BID
     Dates: start: 20031008
  3. YASMIN [Suspect]
  4. IBUPROFEN [Concomitant]
     Dosage: UNK
     Dates: start: 20031204
  5. TYLENOL [Concomitant]
     Indication: PAIN IN EXTREMITY
     Dosage: UNK
     Dates: start: 20031204
  6. ALLEVE [Concomitant]
     Indication: PAIN IN EXTREMITY
     Dosage: UNK
     Dates: start: 20031204

REACTIONS (2)
  - PULMONARY EMBOLISM [None]
  - DEEP VEIN THROMBOSIS [None]
